FAERS Safety Report 6186415-2 (Version None)
Quarter: 2009Q2

REPORT INFORMATION
  Report Type: 
  Country: None (occurrence: None)
  Receive Date: 20090511
  Receipt Date: 20090428
  Transmission Date: 20091009
  Serious: Yes (Death, Hospitalization)
  Sender: FDA-Public Use
  Company Number: JP-AMGEN-US341568

PATIENT
  Sex: Female

DRUGS (5)
  1. ENBREL [Suspect]
     Indication: RHEUMATOID ARTHRITIS
     Route: 058
     Dates: start: 20070129, end: 20081216
  2. PRELONE [Suspect]
     Indication: RHEUMATOID ARTHRITIS
     Route: 048
     Dates: start: 20060601, end: 20090314
  3. RHEUMATREX [Suspect]
     Indication: RHEUMATOID ARTHRITIS
     Route: 048
     Dates: start: 20051101, end: 20051101
  4. RHEUMATREX [Suspect]
     Route: 048
     Dates: start: 20051101, end: 20051101
  5. RHEUMATREX [Suspect]
     Route: 048
     Dates: start: 20051101, end: 20090305

REACTIONS (5)
  - CANDIDIASIS [None]
  - ENTEROBACTER INFECTION [None]
  - EXTRADURAL ABSCESS [None]
  - PNEUMONIA [None]
  - STAPHYLOCOCCAL INFECTION [None]
